FAERS Safety Report 9999693 (Version 1)
Quarter: 2014Q1

REPORT INFORMATION
  Report Type: Report from Study
  Country: US (occurrence: US)
  Receive Date: 20140312
  Receipt Date: 20140312
  Transmission Date: 20141002
  Serious: Yes (Hospitalization)
  Sender: FDA-Public Use
  Company Number: US-JNJFOC-20140303717

PATIENT
  Age: 79 Year
  Sex: Male
  Weight: 95.26 kg

DRUGS (8)
  1. REMICADE [Suspect]
     Indication: RHEUMATOID ARTHRITIS
     Route: 042
     Dates: start: 201310
  2. METHOTREXATE [Concomitant]
     Indication: RHEUMATOID ARTHRITIS
     Route: 048
  3. LEVOXYL [Concomitant]
     Indication: THYROID DISORDER
     Route: 048
  4. CRESTOR [Concomitant]
     Indication: BLOOD CHOLESTEROL
     Route: 065
  5. OMEPRAZOLE [Concomitant]
     Route: 048
  6. LOSARTAN [Concomitant]
     Indication: BLOOD PRESSURE
     Route: 048
  7. AMLODIPINE [Concomitant]
     Indication: BLOOD PRESSURE
     Route: 048
  8. MELOXICAM [Concomitant]
     Indication: RHEUMATOID ARTHRITIS
     Route: 048

REACTIONS (3)
  - Rheumatoid arthritis [Recovered/Resolved]
  - Pulmonary oedema [Not Recovered/Not Resolved]
  - Lung disorder [Not Recovered/Not Resolved]
